FAERS Safety Report 7298314-3 (Version None)
Quarter: 2011Q1

REPORT INFORMATION
  Report Type: 
  Country: None (occurrence: None)
  Receive Date: 20110217
  Receipt Date: 20100331
  Transmission Date: 20110831
  Serious: No
  Sender: FDA-Public Use
  Company Number: US-PFIZER INC-2010042554

PATIENT
  Sex: Male
  Weight: 70.295 kg

DRUGS (1)
  1. XALATAN [Suspect]
     Indication: GLAUCOMA
     Dosage: UNK, ONE DROP IN RIGHT EYE DAILY AT NIGHT
     Dates: start: 20100328

REACTIONS (1)
  - INFLUENZA LIKE ILLNESS [None]
